FAERS Safety Report 12503114 (Version 2)
Quarter: 2016Q3

REPORT INFORMATION
  Report Type: Spontaneous
  Country: FR (occurrence: FR)
  Receive Date: 20160628
  Receipt Date: 20160817
  Transmission Date: 20161109
  Serious: No
  Sender: FDA-Public Use
  Company Number: FR-ABBVIE-16K-056-1659675-00

PATIENT
  Age: 11 Year
  Sex: Female
  Weight: 36 kg

DRUGS (2)
  1. HUMIRA [Suspect]
     Active Substance: ADALIMUMAB
     Dosage: DOSE INCREASED
     Route: 058
     Dates: start: 2016
  2. HUMIRA [Suspect]
     Active Substance: ADALIMUMAB
     Indication: PRODUCT USED FOR UNKNOWN INDICATION
     Route: 058
     Dates: end: 2016

REACTIONS (3)
  - Gingival hypertrophy [Not Recovered/Not Resolved]
  - Crohn^s disease [Unknown]
  - Gingival ulceration [Not Recovered/Not Resolved]

NARRATIVE: CASE EVENT DATE: 201605
